FAERS Safety Report 15803262 (Version 2)
Quarter: 2019Q1

REPORT INFORMATION
  Report Type: Spontaneous
  Country: US (occurrence: US)
  Receive Date: 20190109
  Receipt Date: 20190121
  Transmission Date: 20190417
  Serious: Yes (Other)
  Sender: FDA-Public Use
  Company Number: US-JNJFOC-20190107851

PATIENT
  Age: 74 Year
  Sex: Female
  Weight: 74.84 kg

DRUGS (2)
  1. SIMPONI [Suspect]
     Active Substance: GOLIMUMAB
     Indication: ARTHRITIS
     Route: 058
     Dates: end: 201811
  2. SIMPONI [Suspect]
     Active Substance: GOLIMUMAB
     Indication: ARTHRITIS
     Route: 058
     Dates: start: 201812

REACTIONS (6)
  - Eye ulcer [Recovered/Resolved]
  - Product dose omission [Unknown]
  - Device malfunction [Unknown]
  - Pain [Not Recovered/Not Resolved]
  - Cataract [Not Recovered/Not Resolved]
  - Myocardial infarction [Unknown]

NARRATIVE: CASE EVENT DATE: 201806
